FAERS Safety Report 6252327-9 (Version None)
Quarter: 2009Q2

REPORT INFORMATION
  Report Type: 
  Country: None (occurrence: None)
  Receive Date: 20090629
  Receipt Date: 20090629
  Transmission Date: 20091009
  Serious: Yes (Disabling)
  Sender: FDA-Public Use
  Company Number: None

PATIENT
  Sex: Female
  Weight: 81.6475 kg

DRUGS (3)
  1. ZYPREXA [Suspect]
     Indication: APPETITE DISORDER
     Dosage: 20 MG BEDTIME 1
     Dates: start: 20020101, end: 20060101
  2. ZYPREXA [Suspect]
     Indication: INSOMNIA
     Dosage: 20 MG BEDTIME 1
     Dates: start: 20020101, end: 20060101
  3. ZYPREXA [Suspect]
     Indication: PAIN
     Dosage: 20 MG BEDTIME 1
     Dates: start: 20020101, end: 20060101

REACTIONS (1)
  - TYPE 2 DIABETES MELLITUS [None]
